FAERS Safety Report 7549713-3 (Version None)
Quarter: 2011Q2

REPORT INFORMATION
  Report Type: 
  Country: None (occurrence: None)
  Receive Date: 20110615
  Receipt Date: 20110531
  Transmission Date: 20111010
  Serious: Yes (Hospitalization)
  Sender: FDA-Public Use
  Company Number: ES-WATSON-2011-03919

PATIENT
  Age: 65 Year
  Sex: Female

DRUGS (1)
  1. LEVETIRACETAM [Suspect]
     Indication: NERVOUS SYSTEM DISORDER
     Dosage: 250 MG, Q8H
     Route: 048

REACTIONS (1)
  - HYPONATRAEMIA [None]
